FAERS Safety Report 4314623-1 (Version None)
Quarter: 2004Q1

REPORT INFORMATION
  Report Type: 
  Country: None (occurrence: None)
  Receive Date: 20040308
  Receipt Date: 20040223
  Transmission Date: 20041129
  Serious: Yes (Hospitalization, Other)
  Sender: FDA-Public Use
  Company Number: 2004004968

PATIENT
  Age: 72 Year
  Sex: Female

DRUGS (10)
  1. LIPITOR [Suspect]
     Indication: HYPERLIPIDAEMIA
     Dosage: 10 MG (DAILY), ORAL
     Route: 048
     Dates: start: 20030813, end: 20031026
  2. NICERGOLINE (NICERGOLINE) [Concomitant]
  3. GLIMEPIRIDE [Concomitant]
  4. METHIMAZOLE [Concomitant]
  5. BARNIDIPINE HYDROCHLORIDE (BARNIDIPINE HYDROCHLORIDE) [Concomitant]
  6. BACLOFEN [Concomitant]
  7. AFLOQUALONE (AFLOQUALONE) [Concomitant]
  8. IMIDAPRIL HYDROCHLORIDE (IMIDAPRIL HYDROCHLORIDE) [Concomitant]
  9. TEPRENONE (TEPRENONE) [Concomitant]
  10. ALFACALCIDOL (ALFACALCIDOL) [Concomitant]

REACTIONS (3)
  - BLOOD ALBUMIN INCREASED [None]
  - OVERDOSE [None]
  - RHABDOMYOLYSIS [None]
